FAERS Safety Report 12482425 (Version 2)
Quarter: 2016Q3

REPORT INFORMATION
  Report Type: Report from Study
  Country: JP (occurrence: JP)
  Receive Date: 20160620
  Receipt Date: 20160808
  Transmission Date: 20161109
  Serious: Yes (Death, Other)
  Sender: FDA-Public Use
  Company Number: JP-UCBSA-2016022491

PATIENT
  Age: 90 Year
  Sex: Male
  Weight: 49 kg

DRUGS (6)
  1. HORIZON [Concomitant]
     Active Substance: DIAZEPAM
     Dosage: 5 MG, ONCE DAILY (QD)
     Route: 042
     Dates: start: 20160523, end: 20160523
  2. ALEVIATIN [Concomitant]
     Active Substance: PHENYTOIN SODIUM
     Indication: PARTIAL SEIZURES WITH SECONDARY GENERALISATION
     Dosage: 250 MG ONCE DAILY
     Route: 042
     Dates: start: 20160522, end: 20160522
  3. ZONISAMIDE. [Concomitant]
     Active Substance: ZONISAMIDE
     Indication: PRODUCT USED FOR UNKNOWN INDICATION
     Route: 048
  4. LEVETIRACETAM. [Suspect]
     Active Substance: LEVETIRACETAM
     Indication: PARTIAL SEIZURES WITH SECONDARY GENERALISATION
     Dosage: 500 MG, 2X/DAY (BID)
     Route: 041
     Dates: start: 20160522, end: 20160528
  5. HORIZON [Concomitant]
     Active Substance: DIAZEPAM
     Indication: PARTIAL SEIZURES WITH SECONDARY GENERALISATION
     Dosage: 5 MG, 2X/DAY (BID)
     Route: 042
     Dates: start: 20160522, end: 20160522
  6. CEFEPIME HYDROCHLORIDE. [Suspect]
     Active Substance: CEFEPIME HYDROCHLORIDE
     Indication: PRODUCT USED FOR UNKNOWN INDICATION
     Dosage: UNK

REACTIONS (2)
  - Cerebral haemorrhage [Fatal]
  - Liver disorder [Not Recovered/Not Resolved]

NARRATIVE: CASE EVENT DATE: 2016
